FAERS Safety Report 11340452 (Version 1)
Quarter: 2015Q3

REPORT INFORMATION
  Report Type: Spontaneous
  Country: CH (occurrence: CH)
  Receive Date: 20150805
  Receipt Date: 20150805
  Transmission Date: 20151125
  Serious: Yes (Hospitalization)
  Sender: FDA-Public Use
  Company Number: CH-SA-2015SA113499

PATIENT
  Age: 74 Year
  Sex: Female

DRUGS (17)
  1. MAGNESIUM DIASPORAL [Concomitant]
     Route: 048
  2. LASIX [Suspect]
     Active Substance: FUROSEMIDE
     Indication: OEDEMA PERIPHERAL
     Route: 048
     Dates: start: 20150629, end: 20150709
  3. AUGMENTIN [Suspect]
     Active Substance: AMOXICILLIN\CLAVULANATE POTASSIUM
     Indication: DERMO-HYPODERMITIS
     Route: 048
     Dates: start: 20150629, end: 20150713
  4. MICARDIS [Concomitant]
     Active Substance: TELMISARTAN
     Route: 048
  5. LASIX [Suspect]
     Active Substance: FUROSEMIDE
     Indication: OEDEMA PERIPHERAL
     Route: 042
     Dates: start: 20150713, end: 20150713
  6. METAMUCIL [Concomitant]
     Active Substance: PLANTAGO SEED
     Route: 048
  7. STRUCTUM [Concomitant]
     Active Substance: SODIUM CHONDROITIN SULFATE
     Route: 048
  8. LASIX [Suspect]
     Active Substance: FUROSEMIDE
     Indication: OEDEMA PERIPHERAL
     Route: 042
     Dates: start: 20150710, end: 20150710
  9. LASIX [Suspect]
     Active Substance: FUROSEMIDE
     Indication: OEDEMA PERIPHERAL
     Route: 042
     Dates: start: 20150711, end: 20150711
  10. BETASEC [Concomitant]
     Route: 048
  11. SIMCORA [Concomitant]
     Active Substance: SIMVASTATIN
     Route: 048
     Dates: end: 20150713
  12. CALCIUM [Concomitant]
     Active Substance: CALCIUM
     Route: 048
  13. LASIX [Suspect]
     Active Substance: FUROSEMIDE
     Indication: OEDEMA PERIPHERAL
     Route: 048
     Dates: start: 20150714, end: 20150714
  14. TORASEMID [Concomitant]
     Active Substance: TORSEMIDE
     Route: 048
  15. BONVIVA [Concomitant]
     Active Substance: IBANDRONATE SODIUM
     Route: 048
  16. ADALAT [Concomitant]
     Active Substance: NIFEDIPINE
     Route: 048
  17. ASPIRIN CARDIO [Concomitant]
     Active Substance: ASPIRIN
     Route: 048

REACTIONS (1)
  - Linear IgA disease [Not Recovered/Not Resolved]

NARRATIVE: CASE EVENT DATE: 20150710
